FAERS Safety Report 10188084 (Version 1)
Quarter: 2014Q2

REPORT INFORMATION
  Report Type: Spontaneous
  Country: US (occurrence: US)
  Receive Date: 20140522
  Receipt Date: 20140522
  Transmission Date: 20141212
  Serious: No
  Sender: FDA-Public Use
  Company Number: US-PFIZER INC-2014139717

PATIENT
  Sex: Female

DRUGS (3)
  1. VERAPAMIL HCL [Suspect]
     Dosage: UNK
  2. LISINOPRIL [Suspect]
     Dosage: UNK
  3. CARDIZEM [Suspect]
     Dosage: UNK

REACTIONS (1)
  - Drug ineffective [Unknown]
